FAERS Safety Report 7125848-4 (Version None)
Quarter: 2010Q4

REPORT INFORMATION
  Report Type: 
  Country: None (occurrence: None)
  Receive Date: 20101129
  Receipt Date: 20101115
  Transmission Date: 20110411
  Serious: Yes (Hospitalization, Other)
  Sender: FDA-Public Use
  Company Number: RU-ROCHE-742181

PATIENT
  Sex: Male
  Weight: 83 kg

DRUGS (1)
  1. ISOTRETINOIN [Suspect]
     Indication: ACNE
     Route: 048
     Dates: start: 20090807, end: 20100207

REACTIONS (8)
  - BRONCHITIS [None]
  - DIARRHOEA [None]
  - DRY SKIN [None]
  - FASCIITIS [None]
  - HYPERHIDROSIS [None]
  - HYPERTENSION [None]
  - HYPOTHERMIA [None]
  - PANCREATITIS [None]
